FAERS Safety Report 10242504 (Version 1)
Quarter: 2014Q2

REPORT INFORMATION
  Report Type: Spontaneous
  Country: US (occurrence: US)
  Receive Date: 20140617
  Receipt Date: 20140617
  Transmission Date: 20141212
  Serious: Yes (Other)
  Sender: FDA-Public Use
  Company Number: US-ASTRAZENECA-2014SE40695

PATIENT
  Age: 65 Year
  Sex: Female
  Weight: 83.9 kg

DRUGS (6)
  1. NEXIUM [Suspect]
     Indication: GASTROOESOPHAGEAL REFLUX DISEASE
     Route: 048
  2. NEXIUM [Suspect]
     Indication: GASTROOESOPHAGEAL REFLUX DISEASE
     Route: 048
  3. NEXIUM [Suspect]
     Indication: GASTROOESOPHAGEAL REFLUX DISEASE
     Route: 048
     Dates: start: 2002, end: 201309
  4. PRILOSEC OTC [Suspect]
     Indication: GASTROOESOPHAGEAL REFLUX DISEASE
     Dosage: UNKNOWN DAILY
     Route: 048
     Dates: start: 2006, end: 2007
  5. HCTZ [Concomitant]
     Indication: HYPERTENSION
     Route: 048
     Dates: start: 2005
  6. TAGAMENT [Concomitant]
     Dosage: FOR A FEW WEEKS

REACTIONS (18)
  - Tibia fracture [Recovered/Resolved]
  - Exostosis [Unknown]
  - Road traffic accident [Unknown]
  - Muscle spasms [Unknown]
  - Adverse event [Unknown]
  - Cough [Not Recovered/Not Resolved]
  - Gastrooesophageal reflux disease [Not Recovered/Not Resolved]
  - Limb injury [Unknown]
  - Wheezing [Recovered/Resolved]
  - Bronchitis viral [Recovered/Resolved]
  - Blood pressure increased [Unknown]
  - Hypertension [Unknown]
  - Intervertebral disc degeneration [Unknown]
  - Abdominal pain [Not Recovered/Not Resolved]
  - Drug ineffective [Unknown]
  - Off label use [Recovered/Resolved]
  - Intentional product misuse [Unknown]
  - Therapy cessation [Unknown]
